FAERS Safety Report 7675632-8 (Version None)
Quarter: 2011Q3

REPORT INFORMATION
  Report Type: 
  Country: None (occurrence: None)
  Receive Date: 20110810
  Receipt Date: 20110805
  Transmission Date: 20111222
  Serious: Yes (Other)
  Sender: FDA-Public Use
  Company Number: EC-PFIZER INC-2011138778

PATIENT
  Sex: Female

DRUGS (4)
  1. LEXOTAN [Concomitant]
     Dosage: UNK
     Route: 048
  2. VARENICLINE TARTRATE [Suspect]
     Indication: SMOKING CESSATION THERAPY
     Dosage: UNK MG, UNK
     Route: 048
     Dates: start: 20110501
  3. CYMBALTA [Concomitant]
     Dosage: UNK
     Route: 048
  4. TRAMADOL HCL [Concomitant]
     Dosage: UNK
     Route: 048

REACTIONS (2)
  - HEADACHE [None]
  - FIBROMYALGIA [None]
